FAERS Safety Report 9624119 (Version 2)
Quarter: 2013Q4

REPORT INFORMATION
  Report Type: Spontaneous
  Country: US (occurrence: US)
  Receive Date: 20131015
  Receipt Date: 20131015
  Transmission Date: 20140711
  Serious: No
  Sender: FDA-Public Use
  Company Number: US-PURDUE-USA-2012-0088468

PATIENT
  Sex: Male
  Weight: 103.4 kg

DRUGS (1)
  1. BUTRANS [Suspect]
     Indication: INTERVERTEBRAL DISC DEGENERATION
     Dosage: 20 MCG/HR, UNK
     Route: 062
     Dates: start: 20110817, end: 20111219

REACTIONS (1)
  - Skin reaction [Recovered/Resolved]
